FAERS Safety Report 6941809-X (Version None)
Quarter: 2010Q3

REPORT INFORMATION
  Report Type: 
  Country: None (occurrence: None)
  Receive Date: 20100826
  Receipt Date: 20100816
  Transmission Date: 20110219
  Serious: Yes (Other)
  Sender: FDA-Public Use
  Company Number: JP-PFIZER INC-2010081198

PATIENT
  Age: 67 Year
  Sex: Male
  Weight: 50 kg

DRUGS (3)
  1. VFEND [Suspect]
     Indication: BRONCHOPULMONARY ASPERGILLOSIS
     Dosage: 100 MG, 2X/DAY
     Route: 048
     Dates: start: 20090826
  2. TRACLEER [Interacting]
     Indication: PULMONARY ARTERIAL HYPERTENSION
     Dosage: 62.5 MG, 1X/DAY
     Route: 048
     Dates: start: 20100312, end: 20100328
  3. TRACLEER [Interacting]
     Dosage: 62.5 MG, 2X/DAY
     Route: 048
     Dates: start: 20100329

REACTIONS (2)
  - DRUG INTERACTION [None]
  - DRUG LEVEL DECREASED [None]
